FAERS Safety Report 14121811 (Version 1)
Quarter: 2017Q4

REPORT INFORMATION
  Report Type: Spontaneous
  Country: US (occurrence: US)
  Receive Date: 20171024
  Receipt Date: 20171024
  Transmission Date: 20180321
  Serious: No
  Sender: FDA-Public Use
  Company Number: US-PERRIGO-17US000987

PATIENT
  Age: 76 Year
  Sex: Female
  Weight: 60.32 kg

DRUGS (2)
  1. MESALAZINE [Suspect]
     Active Substance: MESALAMINE
     Indication: COLITIS ULCERATIVE
     Dosage: 4000 MG, QHS
     Route: 054
     Dates: start: 2015, end: 2015
  2. MESALAZINE [Suspect]
     Active Substance: MESALAMINE
     Dosage: 4000 MG, QHS
     Route: 054
     Dates: start: 20170111, end: 20170116

REACTIONS (1)
  - Drug ineffective [Unknown]

NARRATIVE: CASE EVENT DATE: 20170111
